FAERS Safety Report 8225932-8 (Version None)
Quarter: 2012Q1

REPORT INFORMATION
  Report Type: 
  Country: None (occurrence: None)
  Receive Date: 20120321
  Receipt Date: 20120308
  Transmission Date: 20120608
  Serious: Yes (Other)
  Sender: FDA-Public Use
  Company Number: DE-MYLANLABS-2012S1005953

PATIENT
  Sex: Female

DRUGS (3)
  1. MESALAZIN [Concomitant]
     Indication: CROHN'S DISEASE
     Route: 048
     Dates: start: 20100201
  2. TILIDINE [Suspect]
     Indication: PAIN
     Dosage: IN THE EVENING
     Route: 048
     Dates: start: 20090908, end: 20100616
  3. AMITRIPTYLINE HCL [Suspect]
     Indication: DEPRESSION
     Route: 048
     Dates: start: 20090908, end: 20100616

REACTIONS (2)
  - MATERNAL EXPOSURE DURING PREGNANCY [None]
  - GESTATIONAL DIABETES [None]
